FAERS Safety Report 14733212 (Version 1)
Quarter: 2018Q2

REPORT INFORMATION
  Report Type: Spontaneous
  Country: DE (occurrence: DE)
  Receive Date: 20180409
  Receipt Date: 20180409
  Transmission Date: 20180711
  Serious: Yes (Other)
  Sender: FDA-Public Use
  Company Number: PHHY2018DE061153

PATIENT
  Age: 61 Year
  Sex: Female

DRUGS (3)
  1. TRASTUZUMAB. [Suspect]
     Active Substance: TRASTUZUMAB
     Indication: BREAST CANCER
     Dosage: 399 MG, Q3W (21 DAYS)
     Route: 042
     Dates: start: 20170706
  2. PERTUZUMAB. [Suspect]
     Active Substance: PERTUZUMAB
     Indication: BREAST CANCER
     Dosage: 420 MG, Q3W (21 DAYS)
     Route: 042
     Dates: start: 20170706
  3. DOCETAXEL. [Suspect]
     Active Substance: DOCETAXEL
     Indication: BREAST CANCER
     Dosage: 124 MG, Q3W (21 DAYS)
     Route: 042
     Dates: start: 20170706

REACTIONS (1)
  - Axillary vein thrombosis [Recovered/Resolved]

NARRATIVE: CASE EVENT DATE: 20171030
